FAERS Safety Report 20212186 (Version 2)
Quarter: 2022Q4

REPORT INFORMATION
  Report Type: Report from Study
  Country: US (occurrence: US)
  Receive Date: 20211221
  Receipt Date: 20221230
  Transmission Date: 20230112
  Serious: No
  Sender: FDA-Public Use
  Company Number: US-ACORDA-ACO_171181_2021

PATIENT
  Age: 73 Year
  Sex: Male

DRUGS (8)
  1. INBRIJA [Suspect]
     Active Substance: LEVODOPA
     Indication: Parkinson^s disease
     Dosage: 84 MILLIGRAMS, PRN (2 CAPSULES OF 42MG AS NEEDED) NOT TO EXCEED 5 DOSES PER DAY
     Dates: start: 20211209
  2. INBRIJA [Suspect]
     Active Substance: LEVODOPA
     Indication: On and off phenomenon
  3. CARBIDOPA\LEVODOPA [Concomitant]
     Active Substance: CARBIDOPA\LEVODOPA
     Indication: Product used for unknown indication
     Dosage: 25-100MG ; 7 TIMES A DAY
     Route: 065
  4. CARBIDOPA\LEVODOPA [Concomitant]
     Active Substance: CARBIDOPA\LEVODOPA
     Dosage: 25-100MG ER AT BEDTIME
  5. ENTACAPONE [Concomitant]
     Active Substance: ENTACAPONE
     Indication: Product used for unknown indication
     Dosage: 200 MILLIGRAM, 6X A DAY
     Route: 065
  6. ESCITALOPRAM [Concomitant]
     Active Substance: ESCITALOPRAM OXALATE
     Indication: Product used for unknown indication
     Dosage: 10 MILLIGRAM, QD
     Route: 065
  7. XADAGO [Concomitant]
     Active Substance: SAFINAMIDE MESYLATE
     Indication: Product used for unknown indication
     Dosage: 100 MILLIGRAM, QD
     Route: 065
  8. CLONAZEPAM [Concomitant]
     Active Substance: CLONAZEPAM
     Indication: Product used for unknown indication
     Dosage: 0.5 MILLIGRAM 1 1/2 TABLET
     Route: 065

REACTIONS (2)
  - Device use issue [Unknown]
  - Cough [Not Recovered/Not Resolved]

NARRATIVE: CASE EVENT DATE: 20211209
